FAERS Safety Report 8008378-7 (Version None)
Quarter: 2011Q4

REPORT INFORMATION
  Report Type: 
  Country: None (occurrence: None)
  Receive Date: 20111227
  Receipt Date: 20111219
  Transmission Date: 20120403
  Serious: Yes (Other)
  Sender: FDA-Public Use
  Company Number: US-ROCHE-791125

PATIENT
  Sex: Female
  Weight: 52.21 kg

DRUGS (2)
  1. ACCUTANE [Suspect]
     Indication: ACNE
     Dosage: DOSE: 40 MG QAM AND 10 MG QHS
     Route: 065
     Dates: start: 19980530, end: 19981001
  2. NUVARING [Concomitant]

REACTIONS (8)
  - INTESTINAL OBSTRUCTION [None]
  - DIVERTICULITIS [None]
  - GASTROINTESTINAL DISORDER [None]
  - DEPRESSION [None]
  - LIP DRY [None]
  - BACK PAIN [None]
  - BLOOD CHOLESTEROL INCREASED [None]
  - BLOOD TRIGLYCERIDES INCREASED [None]
